FAERS Safety Report 23069896 (Version 1)
Quarter: 2023Q4

REPORT INFORMATION
  Report Type: Spontaneous
  Country: US (occurrence: None)
  Receive Date: 20231013
  Receipt Date: 20231013
  Transmission Date: 20240110
  Serious: Yes (Hospitalization)
  Sender: FDA-Public Use
  Company Number: None

PATIENT
  Sex: Male

DRUGS (7)
  1. CAPECITABINE [Suspect]
     Active Substance: CAPECITABINE
     Indication: Breast cancer male
     Dosage: FREQUENCY : AS DIRECTED;?
     Route: 048
     Dates: start: 202308
  2. ALLOPURINOL [Concomitant]
  3. VIETOPROLOL SUCCINATE [Concomitant]
  4. COLCHICINE [Concomitant]
     Active Substance: COLCHICINE
  5. TRINTELUX [Concomitant]
  6. LYRICA [Concomitant]
     Active Substance: PREGABALIN
  7. KISQALI [Concomitant]

REACTIONS (2)
  - Myocardial infarction [None]
  - Thrombosis [None]

NARRATIVE: CASE EVENT DATE: 20230927
